FAERS Safety Report 4534766-7 (Version None)
Quarter: 2004Q4

REPORT INFORMATION
  Report Type: 
  Country: None (occurrence: None)
  Receive Date: 20041222
  Receipt Date: 20040212
  Transmission Date: 20050328
  Serious: No
  Sender: FDA-Public Use
  Company Number: US-BRISTOL-MYERS SQUIBB COMPANY-12505590

PATIENT
  Age: 81 Year
  Sex: Female
  Weight: 83 kg

DRUGS (16)
  1. PRAVACHOL [Suspect]
     Indication: C-REACTIVE PROTEIN
     Route: 048
     Dates: start: 20031222
  2. ACIPHEX [Concomitant]
  3. NORVASC [Concomitant]
  4. DIOVAN HCT [Concomitant]
  5. ASPIRIN [Concomitant]
  6. MULTIVITAMIN [Concomitant]
  7. VITAMIN C [Concomitant]
  8. VITAMIN B6 [Concomitant]
  9. VITAMIN B-12 [Concomitant]
  10. SELENIUM TRACE METAL ADDITIVE [Concomitant]
  11. VITAMIN E [Concomitant]
  12. FOLIC ACID [Concomitant]
  13. GLUCOSAMINE [Concomitant]
  14. CHONDROITIN [Concomitant]
  15. CALCIUM [Concomitant]
  16. CALCIUM + VITAMIN D [Concomitant]

REACTIONS (3)
  - FLATULENCE [None]
  - PAIN [None]
  - PAIN IN EXTREMITY [None]
